FAERS Safety Report 16573008 (Version 1)
Quarter: 2019Q3

REPORT INFORMATION
  Report Type: Spontaneous
  Country: US (occurrence: US)
  Receive Date: 20190715
  Receipt Date: 20190715
  Transmission Date: 20191004
  Serious: No
  Sender: FDA-Public Use
  Company Number: US-SA-2019SA190534

PATIENT

DRUGS (2)
  1. PRALUENT [Suspect]
     Active Substance: ALIROCUMAB
     Dosage: UNK, UNK
  2. REPATHA [Concomitant]
     Active Substance: EVOLOCUMAB
     Dosage: UNK UNK, UNK

REACTIONS (1)
  - Therapy non-responder [Unknown]
